FAERS Safety Report 8832697 (Version 1)
Quarter: 2012Q4

REPORT INFORMATION
  Report Type: Spontaneous
  Country: US (occurrence: None)
  Receive Date: 20121009
  Receipt Date: 20121009
  Transmission Date: 20130627
  Serious: Yes (Hospitalization)
  Sender: FDA-Public Use
  Company Number: None

PATIENT
  Age: 63 Year
  Sex: Male
  Weight: 100.9 kg

DRUGS (2)
  1. HYDROCHLOROTHIAZIDE\LISINOPRIL [Suspect]
     Indication: HYPERTENSION
     Dosage: 12.5/20 MG EVERY DAY PO
     Route: 048
     Dates: start: 20120523, end: 20121004
  2. HYDROCHLOROTHIAZIDE\LISINOPRIL [Suspect]
     Indication: DIABETES MELLITUS
     Dosage: 12.5/20 MG EVERY DAY PO
     Route: 048
     Dates: start: 20120523, end: 20121004

REACTIONS (2)
  - Lip swelling [None]
  - Angioedema [None]
